FAERS Safety Report 6746678-9 (Version None)
Quarter: 2010Q2

REPORT INFORMATION
  Report Type: 
  Country: None (occurrence: None)
  Receive Date: 20100528
  Receipt Date: 20100519
  Transmission Date: 20101027
  Serious: Yes (Life-Threatening, Hospitalization, Other)
  Sender: FDA-Public Use
  Company Number: GB-PFIZER INC-2010060165

PATIENT
  Age: 85 Year
  Sex: Female
  Weight: 60 kg

DRUGS (5)
  1. ARTHROTEC [Suspect]
     Indication: PAIN
     Dosage: 75 MG, 2X/DAY
     Route: 048
     Dates: end: 20100430
  2. ACETYLSALICYLIC ACID [Suspect]
     Indication: PROPHYLAXIS
     Dosage: 300 MG, 1X/DAY
     Route: 048
     Dates: end: 20100430
  3. BISOPROLOL [Concomitant]
  4. IBUPROFEN [Concomitant]
     Route: 062
  5. MISOPROSTOL [Concomitant]

REACTIONS (3)
  - ANURIA [None]
  - GASTRIC ULCER HAEMORRHAGE [None]
  - GASTRIC ULCER PERFORATION [None]
